FAERS Safety Report 4911230-4 (Version None)
Quarter: 2006Q1

REPORT INFORMATION
  Report Type: 
  Country: None (occurrence: None)
  Receive Date: 20060209
  Receipt Date: 20060127
  Transmission Date: 20060701
  Serious: Yes (Hospitalization)
  Sender: FDA-Public Use
  Company Number: HQWYE388417JAN06

PATIENT
  Age: 73 Year
  Sex: Male

DRUGS (8)
  1. CORDARONE [Suspect]
     Dosage: 200 MG TABLET ORAL
     Route: 048
  2. COKENZEN (CANDESARTAN CILEXETIL/HYDROCHLOROTHIAZIDE,) [Suspect]
     Dosage: ORAL
     Route: 048
  3. PREVISCAN (FLUINDIONE,) [Suspect]
     Dosage: 20 MG TABLET ORAL
     Route: 048
     Dates: end: 20051207
  4. FENOFIBRATE [Concomitant]
  5. SINEMET [Concomitant]
  6. SELEGILINE HCL [Concomitant]
  7. ALLOPURINOL [Concomitant]
  8. IMOVANE (ZOPICLONE) [Concomitant]

REACTIONS (3)
  - AZOTAEMIA [None]
  - NEPHRITIS INTERSTITIAL [None]
  - NEPHROANGIOSCLEROSIS [None]
